FAERS Safety Report 16775403 (Version 1)
Quarter: 2019Q3

REPORT INFORMATION
  Report Type: Other
  Country: DE (occurrence: DE)
  Receive Date: 20190905
  Receipt Date: 20190905
  Transmission Date: 20191005
  Serious: Yes (Other)
  Sender: FDA-Public Use
  Company Number: DE-GLENMARK PHARMACEUTICALS-2019GMK042976

PATIENT

DRUGS (4)
  1. LETROZOLE. [Suspect]
     Active Substance: LETROZOLE
     Indication: ASSISTED FERTILISATION
     Dosage: UNK
     Route: 048
  2. THYRONAJOD [Concomitant]
     Active Substance: LEVOTHYROXINE SODIUM\POTASSIUM IODIDE
     Indication: HYPOTHYROIDISM
     Dosage: 75 ?G, QD
     Route: 048
     Dates: start: 20190319, end: 20190719
  3. METFORMIN HYDROCHLORIDE. [Suspect]
     Active Substance: METFORMIN HYDROCHLORIDE
     Indication: POLYCYSTIC OVARIES
     Dosage: 4000 MG, QD (4000 [MG/D ]/ 2X2000MG DAILY DURING THE FIRST TRIMESTER, FROM WEEK 13 1000MG /D)
     Route: 048
     Dates: start: 20190319, end: 20190719
  4. CERVIDIL                           /00278201/ [Concomitant]
     Indication: LABOUR INDUCTION
     Dosage: UNK
     Route: 067
     Dates: start: 20190719, end: 20190719

REACTIONS (2)
  - Abortion spontaneous [Unknown]
  - Exposure during pregnancy [Unknown]
